FAERS Safety Report 12810518 (Version 2)
Quarter: 2016Q4

REPORT INFORMATION
  Report Type: Report from Study
  Country: BR (occurrence: BR)
  Receive Date: 20161005
  Receipt Date: 20161114
  Transmission Date: 20170207
  Serious: Yes (Hospitalization)
  Sender: FDA-Public Use
  Company Number: PHHY2016BR136434

PATIENT
  Sex: Male
  Weight: 50 kg

DRUGS (2)
  1. RITALIN [Suspect]
     Active Substance: METHYLPHENIDATE HYDROCHLORIDE
     Indication: SUBSTANCE DEPENDENCE
     Dosage: 10 MG, QID
     Route: 048
     Dates: start: 201603, end: 201605
  2. RITALIN LA [Suspect]
     Active Substance: METHYLPHENIDATE HYDROCHLORIDE
     Indication: SUBSTANCE DEPENDENCE
     Dosage: 40 MG, QD
     Route: 048

REACTIONS (4)
  - Insomnia [Unknown]
  - Malaise [Unknown]
  - Gastrointestinal carcinoma [Unknown]
  - Product use issue [Unknown]
